FAERS Safety Report 8421974-8 (Version None)
Quarter: 2012Q2

REPORT INFORMATION
  Report Type: 
  Country: None (occurrence: None)
  Receive Date: 20120608
  Receipt Date: 20120605
  Transmission Date: 20120825
  Serious: Yes (Hospitalization)
  Sender: FDA-Public Use
  Company Number: US-PFIZER INC-2012131656

PATIENT
  Sex: Male
  Weight: 62.7 kg

DRUGS (5)
  1. PRILOSEC [Suspect]
  2. PROTONIX [Suspect]
  3. INFLIXIMAB [Suspect]
     Indication: CROHN'S DISEASE
     Dosage: 10 MG/KG, 1 IN 6 WEEK
     Route: 042
     Dates: start: 20110919
  4. MESALAMINE [Concomitant]
     Route: 048
  5. PREDNISONE TAB [Suspect]

REACTIONS (1)
  - CLOSTRIDIAL INFECTION [None]
